FAERS Safety Report 21424872 (Version 1)
Quarter: 2022Q4

REPORT INFORMATION
  Report Type: Spontaneous
  Country: US (occurrence: None)
  Receive Date: 20221008
  Receipt Date: 20221008
  Transmission Date: 20230113
  Serious: No
  Sender: FDA-Public Use
  Company Number: 2022A314742

PATIENT

DRUGS (1)
  1. ACLIDINIUM BROMIDE [Suspect]
     Active Substance: ACLIDINIUM BROMIDE
     Dosage: 400 UG/D
     Route: 055

REACTIONS (3)
  - Anxiety [Unknown]
  - Product dose omission issue [Unknown]
  - Device malfunction [Unknown]
